FAERS Safety Report 6784145-7 (Version None)
Quarter: 2010Q2

REPORT INFORMATION
  Report Type: 
  Country: None (occurrence: None)
  Receive Date: 20100622
  Receipt Date: 20100615
  Transmission Date: 20101027
  Serious: Yes (Other)
  Sender: FDA-Public Use
  Company Number: JP-JNJFOC-20100500056

PATIENT
  Age: 52 Year
  Sex: Female

DRUGS (8)
  1. DUROTEP MT [Suspect]
     Indication: DRUG USE FOR UNKNOWN INDICATION
     Route: 062
  2. DUROTEP MT [Suspect]
     Route: 062
  3. DUROTEP MT [Suspect]
     Route: 062
  4. MS CONTIN [Suspect]
     Indication: DRUG USE FOR UNKNOWN INDICATION
     Route: 048
  5. MS CONTIN [Suspect]
     Route: 048
  6. ANPEC (MORPHINE HYDROCHLORIDE) [Concomitant]
     Dosage: 0.5 ML/HOUR
     Route: 065
  7. ANPEC (MORPHINE HYDROCHLORIDE) [Concomitant]
     Dosage: 0.3 ML/HOUR
     Route: 065
  8. PACIF [Concomitant]
     Route: 048

REACTIONS (2)
  - ALLODYNIA [None]
  - CONSTIPATION [None]
